FAERS Safety Report 15260188 (Version 1)
Quarter: 2018Q3

REPORT INFORMATION
  Report Type: Spontaneous
  Country: US (occurrence: US)
  Receive Date: 20180809
  Receipt Date: 20180809
  Transmission Date: 20181010
  Serious: Yes (Hospitalization, Other)
  Sender: FDA-Public Use
  Company Number: US-GILEAD-2018-0347457

PATIENT
  Age: 64 Year
  Sex: Male

DRUGS (17)
  1. PEPCID                             /00305201/ [Concomitant]
     Active Substance: ALUMINUM HYDROXIDE\MAGNESIUM CARBONATE
  2. POTASSIUM PHOSPHATE                /00493501/ [Concomitant]
     Active Substance: POTASSIUM PHOSPHATE, DIBASIC
  3. LASIX [Concomitant]
     Active Substance: FUROSEMIDE
  4. ULTRAM [Concomitant]
     Active Substance: TRAMADOL HYDROCHLORIDE
  5. SCOPOLAMINE                        /00008703/ [Concomitant]
     Active Substance: SCOPOLAMINE
  6. KEPPRA [Concomitant]
     Active Substance: LEVETIRACETAM
     Dosage: 500 MG, BID
     Route: 048
     Dates: start: 20180607, end: 20180619
  7. ACYCLOVIR                          /00587301/ [Concomitant]
     Active Substance: ACYCLOVIR
  8. TYLENOL [Concomitant]
     Active Substance: ACETAMINOPHEN
  9. CLARITIN?D NOS [Concomitant]
     Active Substance: LORATADINE\PSEUDOEPHEDRINE SULFATE
  10. POTASSIUM CHLORIDE. [Concomitant]
     Active Substance: POTASSIUM CHLORIDE
  11. BENADRYL [Concomitant]
     Active Substance: DIPHENHYDRAMINE HYDROCHLORIDE
  12. VANCOCIN [Concomitant]
     Active Substance: VANCOMYCIN HYDROCHLORIDE
  13. YESCARTA [Suspect]
     Active Substance: AXICABTAGENE CILOLEUCEL
     Indication: NON-HODGKIN^S LYMPHOMA
     Dosage: 68 UNK, UNK
     Route: 042
     Dates: start: 20180608, end: 20180608
  14. ZARXIO [Concomitant]
     Active Substance: FILGRASTIM-SNDZ
  15. SENOKOT [Concomitant]
     Active Substance: SENNOSIDES
  16. NORMAL SALINE [Concomitant]
     Active Substance: SODIUM CHLORIDE
  17. NOXAFIL [Concomitant]
     Active Substance: POSACONAZOLE

REACTIONS (3)
  - Confusional state [Unknown]
  - Pyrexia [Recovered/Resolved]
  - Cytokine release syndrome [Unknown]

NARRATIVE: CASE EVENT DATE: 20180609
